FAERS Safety Report 7689680-5 (Version None)
Quarter: 2011Q3

REPORT INFORMATION
  Report Type: 
  Country: None (occurrence: None)
  Receive Date: 20110817
  Receipt Date: 20110803
  Transmission Date: 20111222
  Serious: Yes (Other)
  Sender: FDA-Public Use
  Company Number: US-BAYER-200829312NA

PATIENT
  Age: 67 Year
  Sex: Female
  Weight: 53.636 kg

DRUGS (29)
  1. MAGNEVIST [Suspect]
     Indication: NUCLEAR MAGNETIC RESONANCE IMAGING
     Dosage: 40 ML, ONCE
     Dates: start: 20041116, end: 20041116
  2. MULTIHANCE [Suspect]
     Indication: PRODUCT USED FOR UNKNOWN INDICATION
  3. LASIX [Concomitant]
  4. ALTACE [Concomitant]
  5. LANOXIN [Concomitant]
  6. SYMBICORT [Concomitant]
  7. SPIRIVA [Concomitant]
  8. ACETYLSALICYLIC ACID SRT [Concomitant]
  9. NIFEDIAC CC [Concomitant]
  10. ALLEGRA [Concomitant]
  11. ALBUTEROL SULFATE AUTOHALER [Concomitant]
  12. FLOVENT [Concomitant]
  13. XYZAL [Concomitant]
  14. LORAZEPAM [Concomitant]
  15. OMNISCAN [Suspect]
     Indication: PRODUCT USED FOR UNKNOWN INDICATION
  16. LOTENSIN [Concomitant]
  17. ALUPENT [Concomitant]
  18. LEVOFLOXACIN [Concomitant]
  19. COREG [Concomitant]
  20. PHENTERMINE [Concomitant]
  21. LIPITOR [Concomitant]
  22. PREDNISONE [Concomitant]
  23. PROHANCE [Suspect]
     Indication: PRODUCT USED FOR UNKNOWN INDICATION
  24. LISINOPRILHYDROCHLOROTHIAZIDE RATIOPHARM [Concomitant]
  25. OPTIMARK [Suspect]
     Indication: PRODUCT USED FOR UNKNOWN INDICATION
  26. METOPROLOL SUCCINATE [Concomitant]
  27. ADVAIR DISKUS 100/50 [Concomitant]
  28. NEXIUM [Concomitant]
  29. CHANTIX [Concomitant]

REACTIONS (9)
  - INJURY [None]
  - EMOTIONAL DISTRESS [None]
  - MOBILITY DECREASED [None]
  - PAIN IN EXTREMITY [None]
  - GENERAL PHYSICAL HEALTH DETERIORATION [None]
  - PRURITUS GENERALISED [None]
  - NEPHROGENIC SYSTEMIC FIBROSIS [None]
  - PAIN [None]
  - ANXIETY [None]
